FAERS Safety Report 4964333-2 (Version None)
Quarter: 2006Q1

REPORT INFORMATION
  Report Type: 
  Country: None (occurrence: None)
  Receive Date: 20060331
  Receipt Date: 20060314
  Transmission Date: 20060701
  Serious: Yes (Hospitalization)
  Sender: FDA-Public Use
  Company Number: GBT040301253

PATIENT
  Age: 57 Year
  Sex: Female
  Weight: 104 kg

DRUGS (15)
  1. GEMCITABINE HYDROCHLORIDE (GEMCITABINE HYDROCHLORIDE) VIAL [Suspect]
     Indication: BREAST CANCER
     Dosage: 2750 MG, OTHER; INTRAVENOUS; 2588 MG OTHER; INTRAVENOUS
     Route: 042
     Dates: start: 20040108, end: 20040225
  2. GEMCITABINE HYDROCHLORIDE (GEMCITABINE HYDROCHLORIDE) VIAL [Suspect]
     Indication: BREAST CANCER
     Dosage: 2750 MG, OTHER; INTRAVENOUS; 2588 MG OTHER; INTRAVENOUS
     Route: 042
     Dates: start: 20040311, end: 20040318
  3. PACLITAXEL [Suspect]
     Indication: BREAST CANCER
     Dosage: 385 MG, OTHER; INTRAVENOUS; 362 MG, OTHER; INTRAVENOUS
     Route: 042
     Dates: start: 20040108, end: 20040219
  4. PACLITAXEL [Suspect]
     Indication: BREAST CANCER
     Dosage: 385 MG, OTHER; INTRAVENOUS; 362 MG, OTHER; INTRAVENOUS
     Route: 042
     Dates: start: 20040311, end: 20040311
  5. EPIRUBICIN [Suspect]
     Indication: BREAST CANCER
     Dosage: 205 MG, OTHER; INTRAVENOUS; 205 MG, OTHER; INTRAVENOUS
     Route: 042
     Dates: start: 20031006, end: 20031006
  6. EPIRUBICIN [Suspect]
     Indication: BREAST CANCER
     Dosage: 205 MG, OTHER; INTRAVENOUS; 205 MG, OTHER; INTRAVENOUS
     Route: 042
     Dates: start: 20031030, end: 20031211
  7. CYCLOPHOSPHAMIDE [Suspect]
     Indication: BREAST CANCER
     Dosage: 1368 MG, OTHER; INTRAVENOUS; 1368 MG, OTHER; INTRAVENOUS
     Route: 042
     Dates: start: 20031006, end: 20031006
  8. CYCLOPHOSPHAMIDE [Suspect]
     Indication: BREAST CANCER
     Dosage: 1368 MG, OTHER; INTRAVENOUS; 1368 MG, OTHER; INTRAVENOUS
     Route: 042
     Dates: start: 20031030, end: 20031211
  9. ENALAPRIL MALEATE [Concomitant]
  10. BENDROFLUAZIDE [Concomitant]
  11. PAROXETINE HCL [Concomitant]
  12. AMITRIPTYLINE HCL [Concomitant]
  13. CO-CODAMOL [Concomitant]
  14. WARFARIN [Concomitant]
  15. DEXAMETHASONE TAB [Concomitant]

REACTIONS (5)
  - BURNING SENSATION [None]
  - CHILLS [None]
  - DEHYDRATION [None]
  - NEUROTOXICITY [None]
  - PYREXIA [None]
